FAERS Safety Report 6432677-3 (Version None)
Quarter: 2009Q4

REPORT INFORMATION
  Report Type: 
  Country: None (occurrence: None)
  Receive Date: 20091109
  Receipt Date: 20091105
  Transmission Date: 20100525
  Serious: Yes (Hospitalization)
  Sender: FDA-Public Use
  Company Number: GXKR2009DE11765

PATIENT
  Sex: Female
  Weight: 65 kg

DRUGS (1)
  1. CLARITHROMYCIN HEXAL (NGX) [Suspect]
     Indication: BRONCHITIS
     Dosage: 250 MG, BID
     Route: 048
     Dates: start: 20090804, end: 20090809

REACTIONS (6)
  - AGEUSIA [None]
  - ASTHENIA [None]
  - CARDIOVASCULAR DISORDER [None]
  - HYPERTENSION [None]
  - PANIC ATTACK [None]
  - TREMOR [None]
